FAERS Safety Report 13871204 (Version 2)
Quarter: 2017Q3

REPORT INFORMATION
  Report Type: Report from Study
  Country: US (occurrence: US)
  Receive Date: 20170816
  Receipt Date: 20170828
  Transmission Date: 20171127
  Serious: Yes (Other)
  Sender: FDA-Public Use
  Company Number: US-SA-2017SA148618

PATIENT
  Age: 8 Month
  Sex: Female

DRUGS (1)
  1. LUMIZYME [Suspect]
     Active Substance: ALGLUCOSIDASE ALFA
     Indication: GLYCOGEN STORAGE DISEASE TYPE II
     Dosage: DOSE: 250.0?FREQUENCY: Q2
     Route: 041
     Dates: start: 20170525

REACTIONS (1)
  - Arrhythmia [Unknown]

NARRATIVE: CASE EVENT DATE: 20170727
